FAERS Safety Report 10276851 (Version 1)
Quarter: 2014Q3

REPORT INFORMATION
  Report Type: Spontaneous
  Country: US (occurrence: None)
  Receive Date: 20140701
  Receipt Date: 20140701
  Transmission Date: 20150326
  Serious: Yes (Disabling)
  Sender: FDA-Public Use
  Company Number: None

PATIENT
  Age: 72 Year
  Sex: Male
  Weight: 151.05 kg

DRUGS (3)
  1. LEVOTHYROXIN [Concomitant]
     Active Substance: LEVOTHYROXINE
  2. ASPIRIN. [Concomitant]
     Active Substance: ASPIRIN
  3. ZOLOFT [Suspect]
     Active Substance: SERTRALINE HYDROCHLORIDE
     Indication: DEPRESSION
     Route: 048
     Dates: start: 20120709, end: 20140609

REACTIONS (5)
  - Vision blurred [None]
  - Blister [None]
  - Visual acuity reduced [None]
  - Activities of daily living impaired [None]
  - Eye disorder [None]

NARRATIVE: CASE EVENT DATE: 20130211
